FAERS Safety Report 5148404-6 (Version None)
Quarter: 2006Q4

REPORT INFORMATION
  Report Type: 
  Country: None (occurrence: None)
  Receive Date: 20061106
  Receipt Date: 20061025
  Transmission Date: 20070319
  Serious: Yes (Hospitalization)
  Sender: FDA-Public Use
  Company Number: 2006129449

PATIENT
  Age: 60 Year
  Sex: Male

DRUGS (4)
  1. ALPRAZOLAM [Suspect]
     Indication: SUICIDE ATTEMPT
     Dosage: ORAL
     Route: 048
     Dates: start: 20061019, end: 20061019
  2. AMOBAN           (ZOPICLONE) [Suspect]
     Indication: SUICIDE ATTEMPT
     Dosage: ORAL
     Route: 048
     Dates: start: 20061019, end: 20061019
  3. URSO 250 [Concomitant]
  4. TAMBOCOR [Concomitant]

REACTIONS (6)
  - BLOOD CHOLINESTERASE DECREASED [None]
  - FAECAL INCONTINENCE [None]
  - OVERDOSE [None]
  - SKIN LACERATION [None]
  - SUICIDE ATTEMPT [None]
  - URINARY INCONTINENCE [None]
